FAERS Safety Report 13850154 (Version 2)
Quarter: 2020Q3

REPORT INFORMATION
  Report Type: Spontaneous
  Country: MX (occurrence: MX)
  Receive Date: 20170809
  Receipt Date: 20200914
  Transmission Date: 20201102
  Serious: Yes (Death)
  Sender: FDA-Public Use
  Company Number: MX-PFIZER INC-2017328382

PATIENT
  Age: 31 Year
  Sex: Female

DRUGS (8)
  1. CHLORAMBUCIL [Suspect]
     Active Substance: CHLORAMBUCIL
     Indication: NON-HODGKIN^S LYMPHOMA STAGE IV
     Dosage: 0.2 MG/KG, DAILY (5 D), EVERY 28 DAYS
  2. VINCRISTINE [Suspect]
     Active Substance: VINCRISTINE
     Indication: NON-HODGKIN^S LYMPHOMA STAGE IV
     Dosage: UNK, CYCLIC, (SIX MONTHLY COURSES)
     Dates: start: 199510
  3. PREDNISONE. [Suspect]
     Active Substance: PREDNISONE
     Dosage: 60 MG/KG, DAILY (5 D), EVERY 28 DAYS
  4. DOXORUBICIN HCL [Suspect]
     Active Substance: DOXORUBICIN HYDROCHLORIDE
     Indication: NON-HODGKIN^S LYMPHOMA
     Dosage: UNK, CYCLIC, (SIX MONTHLY COURSES)
     Dates: start: 199510
  5. CYCLOPHOSPHAMIDE. [Suspect]
     Active Substance: CYCLOPHOSPHAMIDE
     Indication: NON-HODGKIN^S LYMPHOMA STAGE IV
     Dosage: UNK, CYCLIC, (SIX MONTHLY COURSES)
     Dates: start: 199510
  6. FLUDARABINE [Suspect]
     Active Substance: FLUDARABINE PHOSPHATE
     Indication: NON-HODGKIN^S LYMPHOMA STAGE IV
     Dosage: 25 MG/M2, DAILY X 5D (28 DAYS APART), 2 COURSES
  7. METHOTREXATE. [Suspect]
     Active Substance: METHOTREXATE
     Indication: NON-HODGKIN^S LYMPHOMA STAGE IV
     Dosage: UNK, CYCLIC, (SIX MONTHLY COURSES)
     Route: 037
     Dates: start: 199510
  8. PREDNISONE. [Suspect]
     Active Substance: PREDNISONE
     Indication: NON-HODGKIN^S LYMPHOMA STAGE IV
     Dosage: UNK, CYCLIC, (SIX MONTHLY COURSES)
     Dates: start: 199510

REACTIONS (2)
  - Haemophagocytic lymphohistiocytosis [Fatal]
  - Disseminated tuberculosis [Fatal]
